FAERS Safety Report 4537040-8 (Version None)
Quarter: 2004Q4

REPORT INFORMATION
  Report Type: 
  Country: None (occurrence: None)
  Receive Date: 20041223
  Receipt Date: 20040825
  Transmission Date: 20050328
  Serious: Yes (Other)
  Sender: FDA-Public Use
  Company Number: US-BRISTOL-MYERS SQUIBB COMPANY-12684031

PATIENT
  Age: 44 Year
  Sex: Male

DRUGS (6)
  1. ATAZANAVIR [Suspect]
     Indication: HIV INFECTION
     Route: 048
     Dates: start: 20040311, end: 20040326
  2. RITONAVIR [Suspect]
     Indication: HIV INFECTION
     Route: 048
     Dates: start: 20040311, end: 20040326
  3. COMBIVIR [Concomitant]
     Indication: HIV INFECTION
     Dosage: THERAPY INTERRUPTED 08-APR-2004, THEN RESTARTED.
  4. TESTOSTERONE [Concomitant]
     Route: 051
  5. METHADONE HCL [Concomitant]
     Dosage: INITIATED AT 100 MG, DECREASED TO 85 MG ON 31-JUL-2003.
     Route: 051
  6. ANDROGEL [Concomitant]
     Route: 062

REACTIONS (5)
  - CHROMATURIA [None]
  - HYPERBILIRUBINAEMIA [None]
  - JAUNDICE [None]
  - LIVER FUNCTION TEST ABNORMAL [None]
  - URTICARIA [None]
